FAERS Safety Report 7177576-7 (Version None)
Quarter: 2010Q4

REPORT INFORMATION
  Report Type: 
  Country: None (occurrence: None)
  Receive Date: 20101220
  Receipt Date: 20101209
  Transmission Date: 20110411
  Serious: Yes (Congenital Anomaly)
  Sender: FDA-Public Use
  Company Number: FR-GILEAD-2010-0031727

PATIENT
  Sex: Female

DRUGS (5)
  1. TRUVADA [Suspect]
     Indication: HIV INFECTION
     Route: 064
  2. NORVIR [Suspect]
     Indication: HIV INFECTION
  3. PREZISTA [Suspect]
     Indication: HIV INFECTION
     Route: 064
  4. DEPAKENE [Suspect]
     Indication: EPILEPSY
     Route: 064
  5. RIVOTRIL [Suspect]
     Indication: EPILEPSY
     Route: 064
     Dates: start: 20100103, end: 20100103

REACTIONS (2)
  - HEART DISEASE CONGENITAL [None]
  - INTRAVENTRICULAR HAEMORRHAGE [None]
